FAERS Safety Report 15125874 (Version 1)
Quarter: 2018Q3

REPORT INFORMATION
  Report Type: Spontaneous
  Country: US (occurrence: US)
  Receive Date: 20180710
  Receipt Date: 20180710
  Transmission Date: 20181010
  Serious: No
  Sender: FDA-Public Use
  Company Number: US-GALDERMA-US17008880

PATIENT
  Age: 27 Year
  Sex: Female
  Weight: 63.5 kg

DRUGS (4)
  1. ADAPALENE (ADAPALENE) CREAM, 0.1% [Suspect]
     Active Substance: ADAPALENE
     Indication: ACNE
     Dosage: 0.1%
     Route: 061
     Dates: start: 20170227, end: 20170227
  2. IRON [Concomitant]
     Active Substance: IRON
     Indication: PRODUCT USED FOR UNKNOWN INDICATION
  3. DUAC [Concomitant]
     Active Substance: BENZOYL PEROXIDE\CLINDAMYCIN PHOSPHATE
     Dates: start: 20170224
  4. BENZOYL PEROXIDE. [Concomitant]
     Active Substance: BENZOYL PEROXIDE
     Dates: start: 20170224

REACTIONS (16)
  - Lacrimation increased [Recovered/Resolved]
  - Eye pruritus [Recovered/Resolved]
  - Ocular hyperaemia [Unknown]
  - Eyelid exfoliation [Unknown]
  - Eye swelling [Recovered/Resolved]
  - Photosensitivity reaction [Unknown]
  - Eye inflammation [Unknown]
  - Eyelid rash [Recovered/Resolved]
  - Conjunctivitis [Unknown]
  - Hypersensitivity [Recovered/Resolved]
  - Eyelid margin crusting [Unknown]
  - Eye irritation [Unknown]
  - Periorbital oedema [Unknown]
  - Dermatitis contact [Unknown]
  - Skin burning sensation [Recovered/Resolved]
  - Purulent discharge [Unknown]

NARRATIVE: CASE EVENT DATE: 20170227
